FAERS Safety Report 4305526-7 (Version None)
Quarter: 2004Q1

REPORT INFORMATION
  Report Type: 
  Country: None (occurrence: None)
  Receive Date: 20040226
  Receipt Date: 20031113
  Transmission Date: 20041129
  Serious: No
  Sender: FDA-Public Use
  Company Number: US-BRISTOL-MYERS SQUIBB COMPANY-12435301

PATIENT
  Age: 62 Year
  Sex: Female

DRUGS (6)
  1. ABILIFY [Suspect]
     Indication: DISSOCIATIVE IDENTITY DISORDER
     Dosage: ^7.5 MG JULY - AUG 2003^;  7.5 MG 29-OCT-03 TO 13-NOV-03.
     Route: 048
     Dates: start: 20030701, end: 20031113
  2. ATIVAN [Concomitant]
  3. NEURONTIN [Concomitant]
  4. SEROQUEL [Concomitant]
  5. LEXAPRO [Concomitant]
  6. ANTIDEPRESSANT [Concomitant]

REACTIONS (2)
  - AKATHISIA [None]
  - HYPERPHAGIA [None]
